FAERS Safety Report 7936316-1 (Version None)
Quarter: 2011Q4

REPORT INFORMATION
  Report Type: 
  Country: None (occurrence: None)
  Receive Date: 20111123
  Receipt Date: 20111110
  Transmission Date: 20120403
  Serious: Yes (Hospitalization)
  Sender: FDA-Public Use
  Company Number: US-MYLANLABS-2011S1023635

PATIENT
  Age: 6 Year
  Sex: Female

DRUGS (1)
  1. AMITRIPTYLINE HCL [Suspect]
     Indication: SLEEP DISORDER
     Dosage: AT NIGHT. DF IS 100MG TABLETS (PRESCRIBED: 10MG)
     Route: 065

REACTIONS (4)
  - STATUS EPILEPTICUS [None]
  - CONDUCTION DISORDER [None]
  - OVERDOSE [None]
  - ANTIDEPRESSANT DRUG LEVEL ABOVE THERAPEUTIC [None]
